FAERS Safety Report 25650310 (Version 2)
Quarter: 2025Q3

REPORT INFORMATION
  Report Type: Spontaneous
  Country: EU (occurrence: EU)
  Receive Date: 20250806
  Receipt Date: 20250821
  Transmission Date: 20251020
  Serious: Yes (Death, Hospitalization)
  Sender: Alora Pharma
  Company Number: EU-OSMOTICA PHARMACEUTICALS-2025ALO02388

PATIENT
  Age: 59 Year
  Sex: Female
  Weight: 68 kg

DRUGS (7)
  1. VENLAFAXINE [Suspect]
     Active Substance: VENLAFAXINE HYDROCHLORIDE
  2. MIRTAZAPINE [Suspect]
     Active Substance: MIRTAZAPINE
     Route: 048
  3. OXAZEPAM [Suspect]
     Active Substance: OXAZEPAM
     Route: 048
  4. ZOPICLONE [Suspect]
     Active Substance: ZOPICLONE
     Route: 048
  5. ACETAMINOPHEN [Suspect]
     Active Substance: ACETAMINOPHEN
     Route: 048
  6. UNSPECIFIED INGREDIENT [Concomitant]
     Active Substance: UNSPECIFIED INGREDIENT
     Indication: Depression
  7. BENZODIAZEPINE [Concomitant]
     Active Substance: BENZODIAZEPINE
     Indication: Anxiety disorder

REACTIONS (9)
  - Coma [Fatal]
  - Shock [Fatal]
  - Bezoar [Fatal]
  - Haemodynamic instability [Fatal]
  - Acute respiratory distress syndrome [Fatal]
  - Multiple organ dysfunction syndrome [Fatal]
  - Serotonin syndrome [Fatal]
  - Intentional overdose [Fatal]
  - Toxicity to various agents [Fatal]
